FAERS Safety Report 6524528-3 (Version None)
Quarter: 2010Q1

REPORT INFORMATION
  Report Type: 
  Country: None (occurrence: None)
  Receive Date: 20100104
  Receipt Date: 20091224
  Transmission Date: 20100710
  Serious: Yes (Hospitalization)
  Sender: FDA-Public Use
  Company Number: BE-BRISTOL-MYERS SQUIBB COMPANY-14867386

PATIENT
  Age: 41 Year
  Sex: Female
  Weight: 52 kg

DRUGS (11)
  1. CISPLATIN [Suspect]
     Indication: NON-SMALL CELL LUNG CANCER
     Dosage: LAST DOSE WAS ON 2NOV09
     Route: 042
     Dates: start: 20091012
  2. ALIMTA [Suspect]
     Indication: NON-SMALL CELL LUNG CANCER
     Dosage: LAST DOSE ON 2NOV09
     Route: 042
     Dates: start: 20091012
  3. RADIATION THERAPY [Suspect]
     Indication: NON-SMALL CELL LUNG CANCER
     Dosage: 1 DF= 29GY PER FRACTION 5 DAYS/WEEK  IN ONCE DAILY FRACTIONS
     Dates: start: 20091012
  4. FOLIC ACID [Concomitant]
     Dates: start: 20091005
  5. VITAMIN B-12 [Concomitant]
     Dates: start: 20091005
  6. DEXAMETHASONE [Concomitant]
     Dates: start: 20091101, end: 20091103
  7. OMEPRAZOLE [Concomitant]
     Dates: start: 20091005
  8. SYNGEL [Concomitant]
     Indication: PROPHYLAXIS
     Dates: start: 20091102
  9. LITICAN [Concomitant]
     Indication: NAUSEA
     Dates: start: 20091021
  10. TRADOLAN [Concomitant]
     Indication: PAIN
     Dates: start: 20091021
  11. TETRAZEPAM [Concomitant]
     Indication: ANXIETY
     Dates: start: 20091026

REACTIONS (2)
  - DYSPHAGIA [None]
  - GENERAL PHYSICAL HEALTH DETERIORATION [None]
